FAERS Safety Report 5306708-8 (Version None)
Quarter: 2007Q1

REPORT INFORMATION
  Report Type: 
  Country: None (occurrence: None)
  Receive Date: 20070201
  Receipt Date: 20061201
  Transmission Date: 20070707
  Serious: No
  Sender: FDA-Public Use
  Company Number: 2006PV026231

PATIENT
  Age: 43 Year
  Sex: Female
  Weight: 102.5129 kg

DRUGS (5)
  1. BYETTA [Suspect]
     Indication: DIABETES MELLITUS NON-INSULIN-DEPENDENT
     Dosage: 5 MCG;BID;SC
     Route: 058
     Dates: start: 20061130
  2. AMARYL [Concomitant]
  3. GLUCOPHAGE [Concomitant]
  4. AMARYL [Concomitant]
  5. WELCHOL [Concomitant]

REACTIONS (9)
  - BLOOD GLUCOSE INCREASED [None]
  - BOWEL SOUNDS ABNORMAL [None]
  - CONSTIPATION [None]
  - DIZZINESS [None]
  - DRY MOUTH [None]
  - GASTROOESOPHAGEAL REFLUX DISEASE [None]
  - HEADACHE [None]
  - NAUSEA [None]
  - PHARYNGOLARYNGEAL PAIN [None]
